FAERS Safety Report 20774072 (Version 2)
Quarter: 2022Q2

REPORT INFORMATION
  Report Type: Spontaneous
  Country: IT (occurrence: IT)
  Receive Date: 20220502
  Receipt Date: 20220520
  Transmission Date: 20220721
  Serious: Yes (Other)
  Sender: FDA-Public Use
  Company Number: IT-SUN PHARMACEUTICAL INDUSTRIES LTD-2022RR-335349

PATIENT
  Age: 45 Year
  Sex: Female

DRUGS (1)
  1. AZITHROMYCIN [Suspect]
     Active Substance: AZITHROMYCIN
     Indication: COVID-19
     Dosage: 500 MILLIGRAM, DAILY
     Route: 048
     Dates: start: 20220401, end: 20220402

REACTIONS (6)
  - Salivary gland enlargement [Recovered/Resolved]
  - Pharyngeal oedema [Recovered/Resolved]
  - Pruritus [Recovered/Resolved]
  - Face oedema [Recovered/Resolved]
  - Urticaria [Recovered/Resolved]
  - Off label use [Recovered/Resolved]

NARRATIVE: CASE EVENT DATE: 20220402
